FAERS Safety Report 9861628 (Version 1)
Quarter: 2014Q1

REPORT INFORMATION
  Report Type: Spontaneous
  Country: US (occurrence: None)
  Receive Date: 20140131
  Receipt Date: 20140131
  Transmission Date: 20141002
  Serious: No
  Sender: FDA-Public Use
  Company Number: None

PATIENT
  Age: 62 Year
  Sex: Male
  Weight: 108.86 kg

DRUGS (4)
  1. CRESTOR [Suspect]
     Indication: BLOOD CHOLESTEROL INCREASED
     Route: 048
  2. LOSARTAN HCTZ [Concomitant]
  3. METFORMIN [Concomitant]
  4. TRAMADOL [Concomitant]

REACTIONS (3)
  - Myalgia [None]
  - Nausea [None]
  - Vomiting [None]
